FAERS Safety Report 4587610-6 (Version None)
Quarter: 2005Q1

REPORT INFORMATION
  Report Type: 
  Country: None (occurrence: None)
  Receive Date: 20050211
  Receipt Date: 20050131
  Transmission Date: 20050727
  Serious: Yes (Life-Threatening, Hospitalization)
  Sender: FDA-Public Use
  Company Number: 2004-DE-05739DE

PATIENT
  Age: 67 Year
  Sex: Male

DRUGS (4)
  1. AGGRENOX (KAR) (DIPYRIDAMOLE) [Suspect]
     Indication: CEREBRAL ISCHAEMIA
     Dosage: STRENGTH:  DIPYRIDAMOLE 200 MG, ACETYLSALICYLIC ACID 25 MG (SEE TEXT) PO
     Route: 048
     Dates: start: 20041102, end: 20041104
  2. AGGRENOX (KAR) (DIPYRIDAMOLE) [Suspect]
     Indication: PROPHYLAXIS
     Dosage: STRENGTH:  DIPYRIDAMOLE 200 MG, ACETYLSALICYLIC ACID 25 MG (SEE TEXT) PO
     Route: 048
     Dates: start: 20041102, end: 20041104
  3. NEUROPROTECTIVUM (NR) [Concomitant]
  4. CLEXANE (HEPARIN-FRACTION, SODIUM SALT) (NR) [Concomitant]

REACTIONS (2)
  - CEREBRAL HAEMORRHAGE [None]
  - OPERATIVE HAEMORRHAGE [None]
